FAERS Safety Report 10190155 (Version 2)
Quarter: 2014Q2

REPORT INFORMATION
  Report Type: Spontaneous
  Country: US (occurrence: US)
  Receive Date: 20140522
  Receipt Date: 20140523
  Transmission Date: 20141212
  Serious: No
  Sender: FDA-Public Use
  Company Number: US-ASTRAZENECA-2013SE82106

PATIENT
  Age: 11 Year
  Sex: Male
  Weight: 39 kg

DRUGS (6)
  1. PULMICORT FLEXHALER [Suspect]
     Indication: BRONCHOSPASM
     Dosage: 1PUFF 180MCG BID
     Route: 055
     Dates: start: 20130905, end: 20131001
  2. PULMICORT FLEXHALER [Suspect]
     Indication: ASTHMA EXERCISE INDUCED
     Dosage: 1PUFF 180MCG BID
     Route: 055
     Dates: start: 20130905, end: 20131001
  3. VENTOLIN [Concomitant]
     Dosage: 2 PUFFS PRN
  4. ALLEGRA [Concomitant]
  5. ALBUTEROL [Concomitant]
     Indication: ASTHMA EXERCISE INDUCED
     Dosage: 2 PUFFS, BID
     Dates: start: 20050225
  6. CORTICOSTEROID [Concomitant]

REACTIONS (8)
  - Epistaxis [Unknown]
  - Headache [Recovered/Resolved]
  - Abdominal pain upper [Unknown]
  - Osteoporosis [Unknown]
  - Pharyngitis [Recovered/Resolved]
  - Disturbance in attention [Recovered/Resolved]
  - Oropharyngeal pain [Recovered/Resolved]
  - Off label use [Recovered/Resolved]
